FAERS Safety Report 21869802 (Version 1)
Quarter: 2023Q1

REPORT INFORMATION
  Report Type: Spontaneous
  Country: US (occurrence: US)
  Receive Date: 20230117
  Receipt Date: 20230117
  Transmission Date: 20230418
  Serious: Yes (Life-Threatening, Other)
  Sender: FDA-Public Use
  Company Number: US-BRISTOL-MYERS SQUIBB COMPANY-2023-004642

PATIENT
  Age: 59 Year
  Sex: Female
  Weight: 76.66 kg

DRUGS (1)
  1. ORENCIA [Suspect]
     Active Substance: ABATACEPT
     Indication: Rheumatoid arthritis
     Dosage: DOSE : UNAVAILABLE;     FREQ : ONCE PER WEEK?ROUTE OF ADMINISTRATION: INJECTION

REACTIONS (6)
  - Infected cyst [Unknown]
  - Animal bite [Unknown]
  - Infection [Unknown]
  - Limb injury [Unknown]
  - Immunodeficiency [Unknown]
  - Weight decreased [Unknown]

NARRATIVE: CASE EVENT DATE: 20220101
